FAERS Safety Report 10345107 (Version 1)
Quarter: 2014Q3

REPORT INFORMATION
  Report Type: Spontaneous
  Country: US (occurrence: None)
  Receive Date: 20140724
  Receipt Date: 20140724
  Transmission Date: 20150326
  Serious: Yes (Other)
  Sender: FDA-Public Use
  Company Number: AUR-APL-2014-07831

PATIENT
  Age: 11 Year
  Sex: Male

DRUGS (1)
  1. CIPROFLOXACIN. [Suspect]
     Active Substance: CIPROFLOXACIN
     Indication: VIRAEMIA
     Dosage: 500 MG TWICE PER DAY

REACTIONS (3)
  - Abdominal pain [None]
  - Constipation [None]
  - Off label use [None]
